FAERS Safety Report 20506719 (Version 1)
Quarter: 2022Q1

REPORT INFORMATION
  Report Type: Spontaneous
  Country: GB (occurrence: GB)
  Receive Date: 20220223
  Receipt Date: 20220223
  Transmission Date: 20220423
  Serious: Yes (Hospitalization)
  Sender: FDA-Public Use
  Company Number: GB-MYLANLABS-2022M1007855

PATIENT
  Age: 54 Year
  Sex: Female

DRUGS (4)
  1. MIRTAZAPINE [Suspect]
     Active Substance: MIRTAZAPINE
     Indication: Bipolar disorder
     Dosage: UNK
  2. VENLAFAXINE [Suspect]
     Active Substance: VENLAFAXINE HYDROCHLORIDE
     Indication: Bipolar disorder
     Dosage: UNK
  3. NALOXONE [Suspect]
     Active Substance: NALOXONE
     Indication: Product used for unknown indication
     Dosage: UNK
  4. COCODAMOL [Suspect]
     Active Substance: ACETAMINOPHEN\CODEINE PHOSPHATE
     Indication: Product used for unknown indication
     Dosage: 2 STRIPS TAKEN OVERNIGHT, TOOK PREVIOUSLY
     Route: 065

REACTIONS (9)
  - Cerebral infarction [Recovering/Resolving]
  - Brain stem stroke [Recovering/Resolving]
  - Ophthalmoplegia [Not Recovered/Not Resolved]
  - Eyelid ptosis [Unknown]
  - Diplopia [Not Recovered/Not Resolved]
  - Ventricular dysfunction [Unknown]
  - Drug ineffective [Unknown]
  - Overdose [Recovering/Resolving]
  - Intentional overdose [Unknown]
